FAERS Safety Report 18894981 (Version 1)
Quarter: 2021Q1

REPORT INFORMATION
  Report Type: Spontaneous
  Country: CA (occurrence: CA)
  Receive Date: 20210216
  Receipt Date: 20210216
  Transmission Date: 20210420
  Serious: No
  Sender: FDA-Public Use
  Company Number: CA-LUPIN PHARMACEUTICALS INC.-2021-01590

PATIENT
  Age: 33 Year
  Sex: Male

DRUGS (1)
  1. TRIAMCINOLONE ACETONIDE. [Suspect]
     Active Substance: TRIAMCINOLONE ACETONIDE
     Indication: KELOID SCAR
     Dosage: UNK, (5?40 MG/ML; EIGHT INJECTIONS ADMINISTERED OVER 12 MONTHS)
     Route: 026

REACTIONS (3)
  - Injection site pain [Unknown]
  - Skin hypopigmentation [Unknown]
  - Skin ulcer [Unknown]
